FAERS Safety Report 6415316-7 (Version None)
Quarter: 2009Q4

REPORT INFORMATION
  Report Type: 
  Country: None (occurrence: None)
  Receive Date: 20091027
  Receipt Date: 20091019
  Transmission Date: 20100525
  Serious: Yes (Hospitalization, Other)
  Sender: FDA-Public Use
  Company Number: PHHY2009BE46023

PATIENT
  Age: 30 Year
  Sex: Female

DRUGS (3)
  1. CYCLOSPORINE [Suspect]
     Indication: ORGAN TRANSPLANT
     Dosage: 100 MG, BID
     Dates: start: 20030601
  2. MYCOPHENOLATE MOFETIL [Suspect]
     Indication: ORGAN TRANSPLANT
     Dosage: 500 MG, QD4SDO
     Dates: start: 20030601
  3. PREDNISOLONE [Suspect]
     Indication: ORGAN TRANSPLANT
     Dosage: 4 MG, QD
     Dates: start: 20030601

REACTIONS (6)
  - ANAEMIA [None]
  - ATRIAL FIBRILLATION [None]
  - CARDIAC MYXOMA [None]
  - INFLAMMATION [None]
  - MASS EXCISION [None]
  - PALPITATIONS [None]
